FAERS Safety Report 7269147-9 (Version None)
Quarter: 2011Q1

REPORT INFORMATION
  Report Type: 
  Country: None (occurrence: None)
  Receive Date: 20110202
  Receipt Date: 20100111
  Transmission Date: 20110831
  Serious: No
  Sender: FDA-Public Use
  Company Number: 2010BI001380

PATIENT
  Age: 31 Year
  Sex: Female

DRUGS (3)
  1. TYSABRI [Suspect]
     Indication: MULTIPLE SCLEROSIS
     Route: 042
     Dates: start: 20080103
  2. BENADRYL [Concomitant]
     Indication: PREMEDICATION
  3. COPAXONE [Concomitant]
     Indication: MULTIPLE SCLEROSIS

REACTIONS (18)
  - MIGRAINE [None]
  - BLOOD GLUCOSE INCREASED [None]
  - APHASIA [None]
  - ABNORMAL LOSS OF WEIGHT [None]
  - SOMNOLENCE [None]
  - EAR INFECTION [None]
  - COGNITIVE DISORDER [None]
  - MULTIPLE SCLEROSIS [None]
  - PREMENSTRUAL SYNDROME [None]
  - HYPERGLYCAEMIA [None]
  - SINUSITIS [None]
  - HYPERTENSION [None]
  - ANGER [None]
  - INFUSION RELATED REACTION [None]
  - ARTHRALGIA [None]
  - BLOOD POTASSIUM DECREASED [None]
  - FATIGUE [None]
  - GASTROENTERITIS [None]
